FAERS Safety Report 6012665-1 (Version None)
Quarter: 2008Q4

REPORT INFORMATION
  Report Type: 
  Country: None (occurrence: None)
  Receive Date: 20081217
  Receipt Date: 20081208
  Transmission Date: 20090506
  Serious: Yes (Other)
  Sender: FDA-Public Use
  Company Number: TUK2008A00160

PATIENT
  Age: 85 Year
  Sex: Female

DRUGS (6)
  1. ACTOS [Suspect]
     Indication: TYPE 2 DIABETES MELLITUS
     Dosage: 15 MG, ORAL
     Route: 048
     Dates: start: 20081015, end: 20081025
  2. ASPIRIN [Concomitant]
  3. CITALOPRAM  HYDROCHLORIDE (CITALOPRAM HYDROCHLORIDE) [Concomitant]
  4. FOSINOPRIL SODIUM (FOSTNOPRTL SODIUM) [Concomitant]
  5. METFORMIN HCL [Concomitant]
  6. SIMVASTATIN (STMVASTATIN) [Concomitant]

REACTIONS (1)
  - URTICARIA [None]
